FAERS Safety Report 7658526-3 (Version None)
Quarter: 2011Q3

REPORT INFORMATION
  Report Type: 
  Country: None (occurrence: None)
  Receive Date: 20110805
  Receipt Date: 20110721
  Transmission Date: 20111222
  Serious: Yes (Hospitalization)
  Sender: FDA-Public Use
  Company Number: US-ELI_LILLY_AND_COMPANY-US201104006798

PATIENT
  Sex: Female

DRUGS (14)
  1. FORTEO [Suspect]
     Dosage: 20 UG, QD
  2. PREDNISONE [Concomitant]
     Dosage: 5 MG, QD
  3. XALATAN [Concomitant]
  4. FORTEO [Suspect]
     Indication: OSTEOPOROSIS
     Dosage: 20 UG, QD
     Dates: start: 20100114
  5. LOTREL [Concomitant]
     Dosage: UNK, QD
  6. VITAMIN D [Concomitant]
  7. CALCIUM CARBONATE [Concomitant]
  8. FISH OIL [Concomitant]
  9. FOLIC ACID [Concomitant]
  10. LOZAL [Concomitant]
  11. ASPIRIN [Concomitant]
  12. NORCO [Concomitant]
     Indication: PAIN
  13. METHOTREXATE [Concomitant]
     Dosage: UNK, WEEKLY (1/W)
  14. CENTRUM [Concomitant]

REACTIONS (4)
  - HYPOTENSION [None]
  - CONSTIPATION [None]
  - ARTHRALGIA [None]
  - OEDEMA PERIPHERAL [None]
